FAERS Safety Report 11471945 (Version 1)
Quarter: 2015Q3

REPORT INFORMATION
  Report Type: Spontaneous
  Country: US (occurrence: US)
  Receive Date: 20150908
  Receipt Date: 20150908
  Transmission Date: 20151125
  Serious: No
  Sender: FDA-Public Use
  Company Number: US-TAKEDA-2015TUS011719

PATIENT
  Age: 53 Year
  Sex: Female
  Weight: 82.54 kg

DRUGS (6)
  1. ALIGN PROBIOTIC [Concomitant]
     Indication: DYSPEPSIA
     Dosage: UNK, QD
     Route: 048
  2. TIROSINT [Concomitant]
     Active Substance: LEVOTHYROXINE SODIUM
     Indication: HYPOTHYROIDISM
     Dosage: 112 ?G, QD
     Route: 048
     Dates: start: 201503
  3. TIROSINT [Concomitant]
     Active Substance: LEVOTHYROXINE SODIUM
     Dosage: 100 ?G, QD
     Route: 048
     Dates: start: 20150824
  4. DEXILANT [Suspect]
     Active Substance: DEXLANSOPRAZOLE
     Indication: GASTROOESOPHAGEAL REFLUX DISEASE
     Dosage: 60 MG, QD
     Route: 048
     Dates: start: 2014
  5. AMITIZA [Concomitant]
     Active Substance: LUBIPROSTONE
     Indication: CONSTIPATION
     Dosage: 8 ?G, UNK
     Route: 048
     Dates: start: 201505
  6. AMITIZA [Concomitant]
     Active Substance: LUBIPROSTONE
     Dosage: 24 ?G, UNK
     Route: 048
     Dates: start: 201505

REACTIONS (2)
  - Abdominal pain [Not Recovered/Not Resolved]
  - Adverse drug reaction [Unknown]

NARRATIVE: CASE EVENT DATE: 20150831
